FAERS Safety Report 20890360 (Version 1)
Quarter: 2022Q2

REPORT INFORMATION
  Report Type: Spontaneous
  Country: US (occurrence: US)
  Receive Date: 20220530
  Receipt Date: 20220530
  Transmission Date: 20220720
  Serious: No
  Sender: FDA-Public Use
  Company Number: US-ELI_LILLY_AND_COMPANY-US202205012526

PATIENT
  Sex: Male

DRUGS (1)
  1. BASAGLAR [Suspect]
     Active Substance: INSULIN GLARGINE
     Indication: Product used for unknown indication
     Dosage: 15 U, BID, ONCE IN THE MORNING AND ONCE AT NIGHT
     Route: 065

REACTIONS (3)
  - Asthenia [Unknown]
  - Renal disorder [Unknown]
  - Inappropriate schedule of product administration [Unknown]
